FAERS Safety Report 18744619 (Version 1)
Quarter: 2021Q1

REPORT INFORMATION
  Report Type: Spontaneous
  Country: CA (occurrence: CA)
  Receive Date: 20210115
  Receipt Date: 20210115
  Transmission Date: 20210419
  Serious: Yes (Hospitalization)
  Sender: FDA-Public Use
  Company Number: CA-TEVA-2021-CA-1867150

PATIENT
  Age: 2 Year
  Sex: Male
  Weight: 12 kg

DRUGS (23)
  1. BENADRYL [Concomitant]
     Active Substance: DIPHENHYDRAMINE HYDROCHLORIDE
  2. ZINECARD [Suspect]
     Active Substance: DEXRAZOXANE HYDROCHLORIDE
     Indication: ACUTE MYELOID LEUKAEMIA
  3. FLUCONAZOLE. [Concomitant]
     Active Substance: FLUCONAZOLE
  4. MORPHINE [Concomitant]
     Active Substance: MORPHINE
  5. IDARUBICIN [Suspect]
     Active Substance: IDARUBICIN
     Indication: ACUTE MYELOID LEUKAEMIA
  6. DIPHENHYDRAMINE. [Concomitant]
     Active Substance: DIPHENHYDRAMINE
  7. VANCOMYCIN [Concomitant]
     Active Substance: VANCOMYCIN
  8. FLUDARABINE [Suspect]
     Active Substance: FLUDARABINE PHOSPHATE
     Indication: ACUTE MYELOID LEUKAEMIA
  9. TYLENOL [Concomitant]
     Active Substance: ACETAMINOPHEN
  10. CASPOFUNGIN [Concomitant]
     Active Substance: CASPOFUNGIN
  11. DEXAMETHASONE. [Concomitant]
     Active Substance: DEXAMETHASONE
     Route: 065
  12. EPINEPHRINE. [Concomitant]
     Active Substance: EPINEPHRINE
  13. GRAVOL [Concomitant]
     Active Substance: DIMENHYDRINATE
  14. TAZOCIN [Concomitant]
     Active Substance: PIPERACILLIN SODIUM\TAZOBACTAM SODIUM
  15. HYDROCORTISONE. [Concomitant]
     Active Substance: HYDROCORTISONE
  16. NEURONTIN [Concomitant]
     Active Substance: GABAPENTIN
  17. LORAZEPAM. [Concomitant]
     Active Substance: LORAZEPAM
  18. METOCLOPRAMIDE. [Concomitant]
     Active Substance: METOCLOPRAMIDE
  19. PIPERACILLIN/TAZOBACTAM [Concomitant]
     Active Substance: PIPERACILLIN SODIUM\TAZOBACTAM SODIUM
  20. SOLU?CORTEF [Concomitant]
     Active Substance: HYDROCORTISONE SODIUM SUCCINATE
  21. CYTARABINE INJECTION [Suspect]
     Active Substance: CYTARABINE
     Indication: ACUTE MYELOID LEUKAEMIA
  22. NEUPOGEN [Concomitant]
     Active Substance: FILGRASTIM
  23. ONDANSETRON [Concomitant]
     Active Substance: ONDANSETRON

REACTIONS (1)
  - Febrile neutropenia [Recovered/Resolved]
